FAERS Safety Report 11871002 (Version 1)
Quarter: 2015Q4

REPORT INFORMATION
  Report Type: Spontaneous
  Country: US (occurrence: None)
  Receive Date: 20151224
  Receipt Date: 20151224
  Transmission Date: 20160305
  Serious: No
  Sender: FDA-Public Use
  Company Number: None

PATIENT
  Age: 60 Year
  Sex: Female

DRUGS (11)
  1. ENOXAPARIN [Concomitant]
     Active Substance: ENOXAPARIN
  2. OXYCODONE [Concomitant]
     Active Substance: OXYCODONE
  3. TEMAZEPAM. [Concomitant]
     Active Substance: TEMAZEPAM
  4. BLINATUMOMAB [Suspect]
     Active Substance: BLINATUMOMAB
     Indication: NEOPLASM MALIGNANT
     Route: 042
     Dates: start: 20150813
  5. ACYCLOVIR. [Concomitant]
     Active Substance: ACYCLOVIR
  6. GABAPENTIN. [Concomitant]
     Active Substance: GABAPENTIN
  7. SENNA [Concomitant]
     Active Substance: SENNA LEAF\SENNOSIDES\SENNOSIDES A AND B
  8. PROCHLORPERAZINE. [Concomitant]
     Active Substance: PROCHLORPERAZINE
  9. PYRIDOXINE [Concomitant]
     Active Substance: PYRIDOXINE
  10. DAPSONE. [Concomitant]
     Active Substance: DAPSONE
  11. DOCUSATE [Concomitant]
     Active Substance: DOCUSATE

REACTIONS (2)
  - Poor venous access [None]
  - Thrombosis in device [None]

NARRATIVE: CASE EVENT DATE: 20150820
